FAERS Safety Report 11288554 (Version 3)
Quarter: 2015Q3

REPORT INFORMATION
  Report Type: Spontaneous
  Country: ES (occurrence: ES)
  Receive Date: 20150721
  Receipt Date: 20150929
  Transmission Date: 20151125
  Serious: Yes (Other)
  Sender: FDA-Public Use
  Company Number: ES-JNJFOC-20150710767

PATIENT
  Age: 45 Year
  Sex: Male
  Weight: 92 kg

DRUGS (8)
  1. ORFIDAL [Concomitant]
     Active Substance: LORAZEPAM
     Route: 065
  2. NOCTAMID [Concomitant]
     Active Substance: LORMETAZEPAM
     Route: 065
  3. ARCOXIA [Concomitant]
     Active Substance: ETORICOXIB
     Route: 065
  4. PAROXETINE [Concomitant]
     Active Substance: PAROXETINE\PAROXETINE HYDROCHLORIDE
     Route: 065
  5. CYANAMIDE [Concomitant]
     Active Substance: CYANAMIDE
     Route: 065
  6. PANTECTA [Concomitant]
     Active Substance: PANTOPRAZOLE SODIUM
     Route: 065
  7. VALSARTAN. [Concomitant]
     Active Substance: VALSARTAN
     Route: 065
  8. STELARA [Suspect]
     Active Substance: USTEKINUMAB
     Indication: ERYTHRODERMIC PSORIASIS
     Dosage: DAY 1 INJECTION, NEXT INJECTION A MONTH LATER AND AFTERWARDS EVERY 12 WEEKS
     Route: 058
     Dates: start: 20140616

REACTIONS (2)
  - Product use issue [Unknown]
  - Polymyositis [Recovered/Resolved]

NARRATIVE: CASE EVENT DATE: 20140616
